FAERS Safety Report 15733076 (Version 2)
Quarter: 2019Q2

REPORT INFORMATION
  Report Type: Report from Study
  Country: None (occurrence: US)
  Receive Date: 20181218
  Receipt Date: 20190510
  Transmission Date: 20190711
  Serious: Yes (Hospitalization)
  Sender: FDA-Public Use
  Company Number: US-ABBVIE-18K-163-2586129-00

PATIENT
  Age: 62 Year
  Sex: Male

DRUGS (1)
  1. HUMIRA [Suspect]
     Active Substance: ADALIMUMAB
     Indication: PSORIASIS
     Route: 058
     Dates: end: 201808

REACTIONS (7)
  - Emotional distress [Unknown]
  - White blood cell count increased [Unknown]
  - Pruritus [Unknown]
  - Fatigue [Unknown]
  - Pneumonia legionella [Unknown]
  - Impaired quality of life [Unknown]
  - Immunosuppression [Unknown]

NARRATIVE: CASE EVENT DATE: 201808
